FAERS Safety Report 9654330 (Version 2)
Quarter: 2013Q4

REPORT INFORMATION
  Report Type: Report from Study
  Country: US (occurrence: US)
  Receive Date: 20131029
  Receipt Date: 20131107
  Transmission Date: 20140711
  Serious: Yes (Other)
  Sender: FDA-Public Use
  Company Number: US-BAXTER-2013BAX042212

PATIENT
  Sex: Female

DRUGS (1)
  1. [PSS GPN] GAMMAGARD [Suspect]
     Indication: PRIMARY IMMUNODEFICIENCY SYNDROME
     Route: 042
     Dates: end: 1992

REACTIONS (1)
  - Hepatitis [Recovered/Resolved]
